FAERS Safety Report 6895142-5 (Version None)
Quarter: 2010Q3

REPORT INFORMATION
  Report Type: 
  Country: None (occurrence: None)
  Receive Date: 20100708
  Receipt Date: 20090626
  Transmission Date: 20110219
  Serious: Yes (Other)
  Sender: FDA-Public Use
  Company Number: 2009217311

PATIENT
  Age: 53 Year
  Sex: Female
  Weight: 86.2 kg

DRUGS (1)
  1. CHANTIX [Suspect]
     Indication: SMOKING CESSATION THERAPY
     Dosage: STARTER PACK, ORAL
     Route: 048
     Dates: start: 20081015, end: 20081130

REACTIONS (1)
  - BLOOD PRESSURE INCREASED [None]
